FAERS Safety Report 25860035 (Version 1)
Quarter: 2025Q3

REPORT INFORMATION
  Report Type: Spontaneous
  Country: US (occurrence: None)
  Receive Date: 20250927
  Receipt Date: 20250927
  Transmission Date: 20251020
  Serious: Yes (Disabling)
  Sender: FDA-CTU
  Company Number: None

PATIENT
  Age: 72 Year
  Sex: Male
  Weight: 109.8 kg

DRUGS (6)
  1. LEVOFLOXACIN [Suspect]
     Active Substance: LEVOFLOXACIN
     Indication: Urinary tract infection
     Dosage: OTHER QUANTITY : 7 TABLET(S);?FREQUENCY : DAILY;?
     Route: 048
     Dates: start: 20250918, end: 20250918
  2. OMEPRAZOLE [Concomitant]
     Active Substance: OMEPRAZOLE
  3. Valsartan, 80 MG [Concomitant]
  4. various common vitamin [Concomitant]
  5. PARAFFIN [Concomitant]
     Active Substance: PARAFFIN
  6. HERBALS [Concomitant]
     Active Substance: HERBALS

REACTIONS (6)
  - Tendonitis [None]
  - Osteoarthritis [None]
  - Toxicity to various agents [None]
  - Stress [None]
  - Anxiety [None]
  - Product prescribing issue [None]

NARRATIVE: CASE EVENT DATE: 20250919
